FAERS Safety Report 12086340 (Version 2)
Quarter: 2017Q1

REPORT INFORMATION
  Report Type: Spontaneous
  Country: US (occurrence: US)
  Receive Date: 20160217
  Receipt Date: 20170218
  Transmission Date: 20170428
  Serious: No
  Sender: FDA-Public Use
  Company Number: US-ALLERGAN-1510383US

PATIENT
  Sex: Male

DRUGS (1)
  1. RESTASIS [Suspect]
     Active Substance: CYCLOSPORINE
     Indication: DRY EYE
     Dosage: UNK
     Route: 047

REACTIONS (5)
  - Dry mouth [Recovered/Resolved]
  - Dry skin [Recovered/Resolved]
  - Eye pain [Recovered/Resolved]
  - Dry eye [Recovered/Resolved]
  - Application site pain [Recovered/Resolved]
